FAERS Safety Report 8512025-5 (Version None)
Quarter: 2012Q3

REPORT INFORMATION
  Report Type: 
  Country: None (occurrence: None)
  Receive Date: 20120716
  Receipt Date: 20120705
  Transmission Date: 20120928
  Serious: No
  Sender: FDA-Public Use
  Company Number: JP-VERTEX PHARMACEUTICALS INC.-AE-2012-008309

PATIENT
  Age: 45 Year
  Sex: Male

DRUGS (4)
  1. TELAVIC (TELAPREVIR) [Suspect]
     Indication: HEPATITIS C
     Route: 048
     Dates: start: 20120523
  2. LOSARTAN POTASSIUM [Concomitant]
     Route: 048
     Dates: end: 20120704
  3. REBETOL [Concomitant]
     Indication: HEPATITIS C
     Route: 048
     Dates: start: 20120523
  4. PEG-INTRON [Concomitant]
     Indication: HEPATITIS C
     Route: 030
     Dates: start: 20120523

REACTIONS (1)
  - BLOOD CREATININE INCREASED [None]
